FAERS Safety Report 21953892 (Version 1)
Quarter: 2023Q1

REPORT INFORMATION
  Report Type: Report from Study
  Country: US (occurrence: US)
  Receive Date: 20230204
  Receipt Date: 20230204
  Transmission Date: 20230418
  Serious: No
  Sender: FDA-Public Use
  Company Number: US-ACORDA-ACO_172580_2022

PATIENT
  Sex: Female

DRUGS (2)
  1. AMPYRA [Suspect]
     Active Substance: DALFAMPRIDINE
     Indication: Product used for unknown indication
     Dosage: 10 MILLIGRAM, Q 12 HRS
     Route: 048
  2. AUBAGIO [Suspect]
     Active Substance: TERIFLUNOMIDE
     Indication: Product used for unknown indication
     Dosage: UNK
     Route: 065

REACTIONS (21)
  - Condition aggravated [Unknown]
  - Feeling abnormal [Unknown]
  - Hypoaesthesia [Unknown]
  - Myalgia [Unknown]
  - Depression [Unknown]
  - Psychiatric symptom [Unknown]
  - Therapy interrupted [Unknown]
  - Diarrhoea [Recovered/Resolved]
  - Pain in extremity [Unknown]
  - Stress urinary incontinence [Unknown]
  - Disturbance in attention [Unknown]
  - Depressed mood [Unknown]
  - Ill-defined disorder [Unknown]
  - Micturition urgency [Unknown]
  - Tremor [Unknown]
  - Fatigue [Unknown]
  - Gait disturbance [Unknown]
  - Initial insomnia [Unknown]
  - Paraesthesia [Unknown]
  - Balance disorder [Unknown]
  - Dizziness [Unknown]
